FAERS Safety Report 8960821 (Version 1)
Quarter: 2012Q4

REPORT INFORMATION
  Report Type: 
  Country: FR (occurrence: FR)
  Receive Date: 20121212
  Receipt Date: 20121212
  Transmission Date: 20130627
  Serious: Yes (Life-Threatening, Hospitalization, Other)
  Sender: FDA-Public Use
  Company Number: FR-ELI_LILLY_AND_COMPANY-FR201211009443

PATIENT
  Age: 0 Year

DRUGS (2)
  1. ZYPREXA [Suspect]
     Dosage: 10 mg, qd
     Route: 064
  2. EFFEXOR [Concomitant]
     Dosage: 37.5 mg, qd

REACTIONS (4)
  - Bradycardia neonatal [Recovered/Resolved]
  - Bradypnoea [Recovered/Resolved]
  - Small for dates baby [Unknown]
  - Foetal exposure during pregnancy [Recovered/Resolved]
